FAERS Safety Report 5042570-9 (Version None)
Quarter: 2006Q3

REPORT INFORMATION
  Report Type: 
  Country: None (occurrence: None)
  Receive Date: 20060705
  Receipt Date: 20060529
  Transmission Date: 20061208
  Serious: Yes (Hospitalization)
  Sender: FDA-Public Use
  Company Number: AU-AVENTIS-200615663GDDC

PATIENT
  Age: 50 Year
  Sex: Female
  Weight: 63.1 kg

DRUGS (11)
  1. DOCETAXEL [Suspect]
     Indication: BREAST CANCER
     Route: 042
     Dates: start: 20060519, end: 20060519
  2. ADRIAMYCIN PFS [Suspect]
     Indication: BREAST CANCER
     Route: 042
     Dates: start: 20060519, end: 20060519
  3. CYCLOPHOSPHAMIDE [Suspect]
     Indication: BREAST CANCER
     Route: 042
     Dates: start: 20060519, end: 20060519
  4. CLEXANE [Concomitant]
     Indication: ANTICOAGULANT THERAPY
     Route: 058
     Dates: start: 20060530, end: 20060530
  5. LOPERAMIDE [Concomitant]
     Indication: DIARRHOEA
     Route: 048
     Dates: start: 20060528, end: 20060528
  6. CHLORVESCENT [Concomitant]
     Dosage: DOSE: 2 P
     Route: 048
     Dates: start: 20060529, end: 20060531
  7. ESOMEPRAZOLE [Concomitant]
     Route: 048
     Dates: start: 20060528, end: 20060531
  8. PARACETAMOL [Concomitant]
     Indication: ANALGESIC EFFECT
     Route: 048
     Dates: start: 20060527, end: 20060530
  9. HYDROMORPHONE HCL [Concomitant]
     Indication: ANALGESIC EFFECT
     Dosage: DOSE: 2-4 MG
     Dates: start: 20060528, end: 20060530
  10. MAXOLON [Concomitant]
     Indication: VOMITING
     Route: 048
     Dates: start: 20060527, end: 20060527
  11. FENTANYL TRANSDERMAL SYSTEM [Concomitant]
     Indication: ANALGESIC EFFECT
     Dosage: DOSE: 12 MCG PATCH
     Route: 062
     Dates: start: 20060527, end: 20060527

REACTIONS (5)
  - COLITIS [None]
  - GASTRITIS [None]
  - GASTROOESOPHAGEAL REFLUX DISEASE [None]
  - NAUSEA [None]
  - NEUTROPENIC SEPSIS [None]
